FAERS Safety Report 14686072 (Version 1)
Quarter: 2018Q1

REPORT INFORMATION
  Report Type: Spontaneous
  Country: US (occurrence: US)
  Receive Date: 20180326
  Receipt Date: 20180326
  Transmission Date: 20180509
  Serious: Yes (Death, Hospitalization)
  Sender: FDA-Public Use
  Company Number: None

PATIENT
  Age: 51 Year
  Sex: Female
  Weight: 71.1 kg

DRUGS (3)
  1. LUTATHERA [Suspect]
     Active Substance: LUTETIUM OXODOTREOTIDE LU-177
     Indication: NEUROENDOCRINE TUMOUR
     Dates: start: 20180314
  2. ONDANSETRON 8 MG IV ONCE [Concomitant]
     Dates: start: 20180314, end: 20180314
  3. AMINO ACID INFUSION (CLINISOL) - 2067 ML ONCE WITH LUTATHERA [Concomitant]
     Dates: start: 20180314, end: 20180314

REACTIONS (4)
  - Multiple organ dysfunction syndrome [None]
  - Fatigue [None]
  - Headache [None]
  - Ischaemic hepatitis [None]

NARRATIVE: CASE EVENT DATE: 20180316
